FAERS Safety Report 15855032 (Version 2)
Quarter: 2019Q1

REPORT INFORMATION
  Report Type: Report from Study
  Country: US (occurrence: US)
  Receive Date: 20190122
  Receipt Date: 20190207
  Transmission Date: 20190417
  Serious: Yes (Hospitalization, Other)
  Sender: FDA-Public Use
  Company Number: US-R-PHARM US LLC-2019RPM00001

PATIENT
  Age: 56 Year
  Sex: Female
  Weight: 61 kg

DRUGS (9)
  1. LIORESAL [Concomitant]
     Active Substance: BACLOFEN
  2. REMERON [Concomitant]
     Active Substance: MIRTAZAPINE
  3. IXABEPILONE [Suspect]
     Active Substance: IXABEPILONE
     Indication: OVARIAN CANCER
     Dosage: 32 MG, DAY 1, 8, 15 EVERY 28 DAYS
     Route: 042
     Dates: start: 20180813, end: 20181217
  4. MACRODANTIN [Concomitant]
     Active Substance: NITROFURANTOIN
  5. OXYCONTIN [Concomitant]
     Active Substance: OXYCODONE HYDROCHLORIDE
  6. COLACE [Concomitant]
     Active Substance: DOCUSATE SODIUM
  7. VITAMIN D3 [Concomitant]
     Active Substance: CHOLECALCIFEROL
  8. FLOMAX [Concomitant]
     Active Substance: TAMSULOSIN HYDROCHLORIDE
  9. MARINOL [Concomitant]
     Active Substance: DRONABINOL

REACTIONS (8)
  - Hypophagia [Unknown]
  - Ascites [Not Recovered/Not Resolved]
  - Dyspnoea [Not Recovered/Not Resolved]
  - Hyperkalaemia [Recovering/Resolving]
  - Pneumonia aspiration [Not Recovered/Not Resolved]
  - Anaemia [Not Recovered/Not Resolved]
  - Off label use [Recovered/Resolved]
  - Pain [Unknown]

NARRATIVE: CASE EVENT DATE: 20180813
